FAERS Safety Report 16460928 (Version 2)
Quarter: 2019Q3

REPORT INFORMATION
  Report Type: Spontaneous
  Country: BR (occurrence: BR)
  Receive Date: 20190621
  Receipt Date: 20190704
  Transmission Date: 20191004
  Serious: Yes (Hospitalization)
  Sender: FDA-Public Use
  Company Number: BR-ROCHE-2339191

PATIENT
  Age: 76 Year
  Sex: Female

DRUGS (1)
  1. GAZYVA [Suspect]
     Active Substance: OBINUTUZUMAB
     Indication: LYMPHOMA
     Route: 042

REACTIONS (7)
  - Chills [Recovered/Resolved]
  - Blood pressure increased [Recovered/Resolved]
  - Hyperthermia [Recovered/Resolved]
  - Tremor [Recovered/Resolved]
  - Electrocardiogram ST segment elevation [Recovered/Resolved]
  - Tachycardia [Recovered/Resolved]
  - Vomiting [Recovered/Resolved]

NARRATIVE: CASE EVENT DATE: 20190318
